FAERS Safety Report 9819650 (Version 1)
Quarter: 2014Q1

REPORT INFORMATION
  Report Type: Spontaneous
  Country: US (occurrence: None)
  Receive Date: 20140113
  Receipt Date: 20140113
  Transmission Date: 20141002
  Serious: Yes (Death)
  Sender: FDA-Public Use
  Company Number: UTC-042783

PATIENT
  Age: 51 Year
  Sex: Female

DRUGS (1)
  1. REMODULIN [Suspect]
     Indication: COR PULMONALE CHRONIC
     Dosage: 0.10225 UG/KG, 1 IN 1 MIN
     Route: 041
     Dates: start: 20130422, end: 2013

REACTIONS (1)
  - Death [None]
